FAERS Safety Report 9472749 (Version 1)
Quarter: 2013Q3

REPORT INFORMATION
  Report Type: Spontaneous
  Country: US (occurrence: US)
  Receive Date: 20130823
  Receipt Date: 20130823
  Transmission Date: 20140515
  Serious: Yes (Other)
  Sender: FDA-Public Use
  Company Number: US-PFIZER INC-2013244090

PATIENT
  Age: 60 Year
  Sex: Female
  Weight: 118 kg

DRUGS (2)
  1. LYRICA [Suspect]
     Indication: FIBROMYALGIA
     Dosage: 75 MG, 2X/DAY
     Dates: start: 201206
  2. LYRICA [Suspect]
     Dosage: 200 MG, 3X/DAY
     Dates: end: 201306

REACTIONS (2)
  - Weight increased [Unknown]
  - Blister [Not Recovered/Not Resolved]
